FAERS Safety Report 6655826-0 (Version None)
Quarter: 2010Q1

REPORT INFORMATION
  Report Type: 
  Country: None (occurrence: None)
  Receive Date: 20100329
  Receipt Date: 20100324
  Transmission Date: 20100710
  Serious: Yes (Life-Threatening)
  Sender: FDA-Public Use
  Company Number: HK-ROCHE-692924

PATIENT
  Age: 82 Year
  Sex: Male

DRUGS (2)
  1. TAMIFLU [Suspect]
     Indication: H1N1 INFLUENZA
     Route: 065
     Dates: start: 20100315
  2. ANTIBIOTIC NOS [Concomitant]
     Indication: H1N1 INFLUENZA
     Dates: start: 20100315

REACTIONS (1)
  - DRUG INEFFECTIVE [None]
